FAERS Safety Report 23747878 (Version 1)
Quarter: 2024Q2

REPORT INFORMATION
  Report Type: Spontaneous
  Country: CH (occurrence: CH)
  Receive Date: 20240416
  Receipt Date: 20240416
  Transmission Date: 20240715
  Serious: Yes (Hospitalization)
  Sender: FDA-Public Use
  Company Number: None

PATIENT
  Age: 65 Year
  Sex: Female
  Weight: 85.8 kg

DRUGS (16)
  1. CYTARABINE [Suspect]
     Active Substance: CYTARABINE
     Dosage: 2. ZYKLUS MATRIX-ANTIK?RPERCHEMOTHERAPIE: RITUXIMAB, MTX, CYTARABIN, THIOTEPA 21.02.- 25.02.2024 ...
     Route: 041
     Dates: start: 20240223, end: 20240224
  2. CYTARABINE [Suspect]
     Active Substance: CYTARABINE
     Dosage: 3. ZYKLUS MATRIX-ANTIK?RPERCHEMOTHERAPIE: RITUXIMAB, MTX, CYTARABIN, THIOTEPA 13.03. -17.03.2024 ...
     Route: 041
     Dates: start: 20240315, end: 20240316
  3. CYTARABINE [Suspect]
     Active Substance: CYTARABINE
     Dosage: 4. ZYKLUS MATRIX-ANTIK?RPERCHEMOTHERAPIE: RITUXIMAB, MTX, CYTARABIN, THIOTEPA AB 02.04.2024 ; CYC...
     Route: 041
     Dates: start: 20240404, end: 20240405
  4. CYTARABINE [Suspect]
     Active Substance: CYTARABINE
     Indication: Central nervous system lymphoma
     Dosage: 1. ZYKLUS MATRIX-ANTIK?RPERCHEMOTHERAPIE: RITUXIMAB, MTX, CYTARABIN, THIOTEPA 26.01. - 30.01.2024...
     Route: 065
     Dates: start: 20240128, end: 20240129
  5. METHOTREXATE [Suspect]
     Active Substance: METHOTREXATE
     Dosage: - 4. ZYKLUS MATRIX-ANTIK?RPERCHEMOTHERAPIE AB 02.04.2024: MTX (80 %-DOSIS) AM TAG 1 (02.04.2024) ...
     Route: 041
     Dates: start: 20240402, end: 20240402
  6. METHOTREXATE [Suspect]
     Active Substance: METHOTREXATE
     Indication: Central nervous system lymphoma
     Dosage: 1. ZYKLUS MATRIX-ANTIK?RPERCHEMOTHERAPIE: RITUXIMAB, MTX, CYTARABIN, THIOTEPA 26.01. - 30.01.2024...
     Route: 041
     Dates: start: 20240127, end: 20240127
  7. METHOTREXATE [Suspect]
     Active Substance: METHOTREXATE
     Dosage: 2. ZYKLUS MATRIX-ANTIK?RPERCHEMOTHERAPIE VOM 21.02.- 25.02.2024: MTX  AM TAG 2 (22.02.2024) MIT 9...
     Route: 041
     Dates: start: 20240222, end: 20240222
  8. METHOTREXATE [Suspect]
     Active Substance: METHOTREXATE
     Dosage: 3. ZYKLUS MATRIX-ANTIK?RPERCHEMOTHERAPIE 13.03. -17.03.2024: MTX AM TAG 2 (14.03.2024) : MTX  MIT...
     Route: 041
     Dates: start: 20240314, end: 20240314
  9. RITUXIMAB [Suspect]
     Active Substance: RITUXIMAB
     Dosage: 2. ZYKLUS MATRIX-ANTIK?RPERCHEMOTHERAPIE 21.02.- 25.02.2024 : RITUXIMAB 375 D-5,1 = RIXATHON INF....
     Route: 041
     Dates: start: 20240221, end: 20240221
  10. RITUXIMAB [Suspect]
     Active Substance: RITUXIMAB
     Indication: Central nervous system lymphoma
     Dosage: 3. ZYKLUS MATRIX-ANTIK?RPERCHEMOTHERAPIE 13.03. -17.03.2024  : RITUXIMAB 375 D-5,1 = RIXATHON INF...
     Route: 041
     Dates: start: 20240313, end: 20240313
  11. RITUXIMAB [Suspect]
     Active Substance: RITUXIMAB
     Dosage: 4. ZYKLUS MATRIX-ANTIK?RPERCHEMOTHERAPIE: RITUXIMAB 375 D-5,1 = RIXATHON INF.LSG: MTX (80 %-DOSIS...
     Route: 041
     Dates: start: 20240402, end: 20240402
  12. RITUXIMAB [Suspect]
     Active Substance: RITUXIMAB
     Dosage: 1. ZYKLUS MATRIX-ANTIK?RPERCHEMOTHERAPIE: RITUXIMAB, MTX, CYTARABIN, THIOTEPA 26.01. - 30.01.2024...
     Route: 041
     Dates: start: 20240126, end: 20240126
  13. TEPADINA [Suspect]
     Active Substance: THIOTEPA
     Dosage: 2. ZYKLUS MATRIX-ANTIK?RPERCHEMOTHERAPIE: RITUXIMAB, MTX, CYTARABIN, THIOTEPA 21.02.- 25.02.2024 ...
     Route: 041
     Dates: start: 20240225, end: 20240225
  14. TEPADINA [Suspect]
     Active Substance: THIOTEPA
     Dosage: 3. ZYKLUS MATRIX-ANTIK?RPERCHEMOTHERAPIE: RITUXIMAB, MTX, CYTARABIN, THIOTEPA 13.03. -17.03.2024 ...
     Route: 041
     Dates: start: 20240317, end: 20240317
  15. TEPADINA [Suspect]
     Active Substance: THIOTEPA
     Dosage: 4. ZYKLUS MATRIX-ANTIK?RPERCHEMOTHERAPIE: RITUXIMAB, MTX, CYTARABIN, THIOTEPA AB 02.04.2024 ; CYC...
     Route: 041
     Dates: start: 20240406, end: 20240406
  16. TEPADINA [Suspect]
     Active Substance: THIOTEPA
     Indication: Central nervous system lymphoma
     Dosage: 1. ZYKLUS MATRIX-ANTIK?RPERCHEMOTHERAPIE: RITUXIMAB, MTX, CYTARABIN, THIOTEPA 26.01. - 30.01.2024...
     Route: 041
     Dates: start: 20240130, end: 20240130

REACTIONS (1)
  - Liver disorder [Recovering/Resolving]

NARRATIVE: CASE EVENT DATE: 20240129
